FAERS Safety Report 21778808 (Version 1)
Quarter: 2022Q4

REPORT INFORMATION
  Report Type: Spontaneous
  Country: ZW (occurrence: ZW)
  Receive Date: 20221226
  Receipt Date: 20221226
  Transmission Date: 20230112
  Serious: Yes (Other)
  Sender: FDA-Public Use
  Company Number: ZW-CIPLA LTD.-2022ZW07408

PATIENT
  Sex: Female

DRUGS (5)
  1. DOLUTEGRAVIR [Suspect]
     Active Substance: DOLUTEGRAVIR
     Indication: Antiretroviral therapy
     Dosage: UNK, 1 COURSE
     Route: 065
  2. DARUNAVIR [Suspect]
     Active Substance: DARUNAVIR
     Indication: Antiretroviral therapy
     Dosage: UNK, 1 COURSE WITH 1 TOTAL DAILY DOSE
     Route: 048
  3. LAMIVUDINE\ZIDOVUDINE [Suspect]
     Active Substance: LAMIVUDINE\ZIDOVUDINE
     Indication: Antiretroviral therapy
     Dosage: UNK
     Route: 065
  4. TENOFOVIR DISOPROXIL FUMARATE [Suspect]
     Active Substance: TENOFOVIR DISOPROXIL FUMARATE
     Indication: Antiretroviral therapy
     Dosage: UNK, 1 COURSE
     Route: 065
  5. RITONAVIR [Suspect]
     Active Substance: RITONAVIR
     Indication: Antiretroviral therapy
     Dosage: UNK, 1 COURSE
     Route: 065

REACTIONS (2)
  - Premature delivery [Unknown]
  - Exposure during pregnancy [Unknown]

NARRATIVE: CASE EVENT DATE: 20220206
